FAERS Safety Report 4667993-9 (Version None)
Quarter: 2005Q2

REPORT INFORMATION
  Report Type: 
  Country: None (occurrence: None)
  Receive Date: 20050520
  Receipt Date: 20050512
  Transmission Date: 20051028
  Serious: Yes (Hospitalization)
  Sender: FDA-Public Use
  Company Number: FR-ABBOTT-05P-056-0300465-00

PATIENT
  Sex: Female

DRUGS (14)
  1. DEPAKOTE [Suspect]
     Indication: AFFECTIVE DISORDER
     Route: 048
     Dates: start: 20050213, end: 20050216
  2. CLONAZEPAM [Suspect]
     Indication: AFFECTIVE DISORDER
     Route: 048
     Dates: start: 20050213, end: 20050216
  3. AMOXICILLIN TRIHYDRATE [Suspect]
     Indication: GASTRODUODENAL ULCER
     Route: 048
     Dates: start: 20050211, end: 20050215
  4. AMOXICILLIN TRIHYDRATE [Suspect]
     Indication: GASTROINTESTINAL HAEMORRHAGE
  5. METRONIDAZOLE [Concomitant]
     Indication: GASTRODUODENAL ULCER
     Route: 048
     Dates: start: 20050211, end: 20050221
  6. METRONIDAZOLE [Concomitant]
     Indication: GASTROINTESTINAL HAEMORRHAGE
  7. OMEPRAZOLE [Concomitant]
     Indication: GASTRODUODENAL ULCER
     Route: 048
     Dates: start: 20050211, end: 20050213
  8. OMEPRAZOLE [Concomitant]
     Indication: GASTROINTESTINAL HAEMORRHAGE
  9. ATORVASTATIN CALCIUM [Concomitant]
     Indication: DRUG USE FOR UNKNOWN INDICATION
     Route: 048
     Dates: start: 20030101
  10. PIRACETAM [Concomitant]
     Indication: DRUG USE FOR UNKNOWN INDICATION
     Route: 048
     Dates: start: 20030101
  11. BETAHISTINE HYDROCHLORIDE [Concomitant]
     Indication: DRUG USE FOR UNKNOWN INDICATION
     Route: 048
     Dates: start: 20030101
  12. TROXERUTIN [Concomitant]
     Indication: DRUG USE FOR UNKNOWN INDICATION
     Route: 048
     Dates: start: 20030101
  13. PANTOPRAZOLE SODIUM [Concomitant]
     Indication: GASTRODUODENAL ULCER
     Route: 048
     Dates: start: 20050213, end: 20050223
  14. PANTOPRAZOLE SODIUM [Concomitant]
     Indication: GASTROINTESTINAL HAEMORRHAGE

REACTIONS (8)
  - BLOOD FIBRINOGEN INCREASED [None]
  - ECZEMA [None]
  - EPIDERMAL NECROSIS [None]
  - HAEMOGLOBIN DECREASED [None]
  - LYMPHOPENIA [None]
  - PRURITUS [None]
  - RASH VESICULAR [None]
  - RED BLOOD CELL SEDIMENTATION RATE INCREASED [None]
